FAERS Safety Report 8051963-7 (Version None)
Quarter: 2012Q1

REPORT INFORMATION
  Report Type: 
  Country: None (occurrence: None)
  Receive Date: 20120118
  Receipt Date: 20120116
  Transmission Date: 20120608
  Serious: Yes (Hospitalization)
  Sender: FDA-Public Use
  Company Number: MX-SANOFI-AVENTIS-2011SA014297

PATIENT
  Age: 47 Year
  Sex: Female

DRUGS (1)
  1. GLIMEPIRIDE [Suspect]
     Indication: TYPE 2 DIABETES MELLITUS
     Route: 048
     Dates: end: 20110201

REACTIONS (2)
  - LOSS OF CONSCIOUSNESS [None]
  - CEREBRAL HAEMORRHAGE [None]
